FAERS Safety Report 7554424-4 (Version None)
Quarter: 2011Q2

REPORT INFORMATION
  Report Type: 
  Country: None (occurrence: None)
  Receive Date: 20110617
  Receipt Date: 20110610
  Transmission Date: 20111010
  Serious: Yes (Other)
  Sender: FDA-Public Use
  Company Number: A0864296A

PATIENT
  Age: 89 Year
  Sex: Female

DRUGS (3)
  1. PREDNISONE [Concomitant]
  2. THEOPHYLLINE [Concomitant]
  3. VENTOLIN HFA [Suspect]
     Indication: ASTHMA
     Dosage: 1PUFF THREE TIMES PER DAY
     Route: 055
     Dates: start: 19820101

REACTIONS (2)
  - ASTHMA [None]
  - PRODUCT QUALITY ISSUE [None]
